FAERS Safety Report 18878169 (Version 1)
Quarter: 2021Q1

REPORT INFORMATION
  Report Type: Spontaneous
  Country: US (occurrence: US)
  Receive Date: 20210211
  Receipt Date: 20210211
  Transmission Date: 20210420
  Serious: No
  Sender: FDA-Public Use
  Company Number: None

PATIENT
  Age: 55 Year
  Sex: Female
  Weight: 68.4 kg

DRUGS (15)
  1. FERROUS SULFATE. [Concomitant]
     Active Substance: FERROUS SULFATE
  2. FLAX [Concomitant]
  3. METFORMIN HCL [Concomitant]
     Active Substance: METFORMIN HYDROCHLORIDE
  4. VITAMIN B12 [Concomitant]
     Active Substance: CYANOCOBALAMIN
  5. GARLIC. [Concomitant]
     Active Substance: GARLIC
  6. DILTIAZEM HCL ER COATED BEADS [Concomitant]
  7. HYLANDS OTC FOR SLEEP [Concomitant]
  8. METOPROLOL TARTRATE. [Concomitant]
     Active Substance: METOPROLOL TARTRATE
  9. VITAMIN D3 [Concomitant]
     Active Substance: CHOLECALCIFEROL
  10. CAPECITABINE. [Suspect]
     Active Substance: CAPECITABINE
     Indication: RECTAL CANCER
     Route: 048
     Dates: start: 20210118
  11. VITAMIN C PLUS [Concomitant]
  12. NASAL SPRAY BOTTLE [Concomitant]
  13. PEPCID [Concomitant]
     Active Substance: FAMOTIDINE
  14. CALCIUM 500 + D [Concomitant]
     Active Substance: CALCIUM\VITAMIN D
  15. VITAMIN E COMPLETE [Concomitant]

REACTIONS (2)
  - Diarrhoea [None]
  - Abdominal distension [None]

NARRATIVE: CASE EVENT DATE: 20210125
